FAERS Safety Report 6094206-6 (Version None)
Quarter: 2009Q1

REPORT INFORMATION
  Report Type: 
  Country: None (occurrence: None)
  Receive Date: 20090226
  Receipt Date: 20090225
  Transmission Date: 20090719
  Serious: Yes (Hospitalization)
  Sender: FDA-Public Use
  Company Number: GB-PFIZER INC-2009172116

PATIENT

DRUGS (2)
  1. LIPITOR [Suspect]
     Route: 048
  2. STATINS [Suspect]
     Indication: MYOCARDIAL INFARCTION

REACTIONS (2)
  - HEPATIC ENZYME INCREASED [None]
  - MYOCARDIAL INFARCTION [None]
